FAERS Safety Report 4895950-6 (Version None)
Quarter: 2006Q1

REPORT INFORMATION
  Report Type: 
  Country: None (occurrence: None)
  Receive Date: 20060130
  Receipt Date: 20060123
  Transmission Date: 20060701
  Serious: Yes (Other)
  Sender: FDA-Public Use
  Company Number: GB-MERCK-0601GBR00116

PATIENT
  Age: 34 Year

DRUGS (4)
  1. DECADRON [Suspect]
     Indication: ADRENOGENITAL SYNDROME
     Route: 048
  2. DECADRON [Suspect]
     Route: 048
  3. TOPIRAMATE [Suspect]
     Indication: EPILEPSY
     Route: 048
     Dates: start: 20050501
  4. FLUDROCORTISONE [Concomitant]
     Indication: ADRENOGENITAL SYNDROME
     Route: 048

REACTIONS (3)
  - ADRENAL INSUFFICIENCY [None]
  - DRUG INTERACTION [None]
  - MALAISE [None]
